FAERS Safety Report 5792404-X (Version None)
Quarter: 2008Q2

REPORT INFORMATION
  Report Type: 
  Country: None (occurrence: None)
  Receive Date: 20080623
  Receipt Date: 20080610
  Transmission Date: 20081010
  Serious: Yes (Hospitalization)
  Sender: FDA-Public Use
  Company Number: 2008BI014901

PATIENT
  Age: 32 Year
  Sex: Female
  Weight: 67.1324 kg

DRUGS (2)
  1. AVONEX [Suspect]
     Indication: MULTIPLE SCLEROSIS
     Dosage: 30 UG; QW; IM
     Route: 030
     Dates: start: 20080108
  2. TOPAMAX [Concomitant]

REACTIONS (8)
  - CONDITION AGGRAVATED [None]
  - FALL [None]
  - INTRACRANIAL ANEURYSM [None]
  - MEMORY IMPAIRMENT [None]
  - MIGRAINE [None]
  - MOVEMENT DISORDER [None]
  - NAUSEA [None]
  - SENSATION OF HEAVINESS [None]
